FAERS Safety Report 8511517-2 (Version None)
Quarter: 2012Q3

REPORT INFORMATION
  Report Type: 
  Country: None (occurrence: None)
  Receive Date: 20120716
  Receipt Date: 20120711
  Transmission Date: 20120928
  Serious: Yes (Hospitalization)
  Sender: FDA-Public Use
  Company Number: US-AMGEN-USASP2011005501

PATIENT
  Age: 66 Year
  Sex: Male

DRUGS (1)
  1. ENBREL [Suspect]
     Indication: PSORIASIS
     Dosage: 50 MG, 2 TIMES/WK
     Dates: start: 20080101

REACTIONS (5)
  - ARTERIAL OCCLUSIVE DISEASE [None]
  - FATIGUE [None]
  - HAEMORRHAGE [None]
  - DIZZINESS [None]
  - PSORIASIS [None]
